FAERS Safety Report 6207968-1 (Version None)
Quarter: 2009Q2

REPORT INFORMATION
  Report Type: 
  Country: None (occurrence: None)
  Receive Date: 20090529
  Receipt Date: 20090501
  Transmission Date: 20091009
  Serious: No
  Sender: FDA-Public Use
  Company Number: A0762527A

PATIENT
  Age: 70 Year
  Sex: Female

DRUGS (4)
  1. VENTOLIN [Suspect]
     Indication: BRONCHIECTASIS
     Dosage: 2PUFF AS REQUIRED
     Route: 055
     Dates: start: 20090101
  2. DOXYCYCLINE [Concomitant]
  3. TOBI [Concomitant]
     Route: 055
  4. ARMOUR [Concomitant]

REACTIONS (2)
  - DYSPNOEA [None]
  - WHEEZING [None]
